FAERS Safety Report 10089180 (Version 1)
Quarter: 2014Q2

REPORT INFORMATION
  Report Type: Spontaneous
  Country: US (occurrence: None)
  Receive Date: 20140418
  Receipt Date: 20140418
  Transmission Date: 20141212
  Serious: Yes (Disabling)
  Sender: FDA-Public Use
  Company Number: None

PATIENT
  Age: 62 Year
  Sex: Male
  Weight: 78.93 kg

DRUGS (2)
  1. LEVOFLOXACIN [Suspect]
     Indication: SINUSITIS
     Route: 048
     Dates: start: 20140404, end: 20140407
  2. LEVOFLOXACIN [Suspect]
     Indication: DISEASE RECURRENCE
     Route: 048
     Dates: start: 20140404, end: 20140407

REACTIONS (4)
  - Back pain [None]
  - Gait disturbance [None]
  - Neuropathy peripheral [None]
  - Headache [None]
